FAERS Safety Report 20042966 (Version 1)
Quarter: 2021Q4

REPORT INFORMATION
  Report Type: Spontaneous
  Country: FR (occurrence: FR)
  Receive Date: 20211108
  Receipt Date: 20211108
  Transmission Date: 20220303
  Serious: Yes (Disabling, Congenital Anomaly, Other)
  Sender: FDA-Public Use
  Company Number: FR-ABBVIE-21K-056-4147079-00

PATIENT
  Sex: Male

DRUGS (1)
  1. VALPROIC ACID [Suspect]
     Active Substance: VALPROIC ACID
     Indication: Maternal exposure timing unspecified
     Route: 064

REACTIONS (11)
  - Prognathism [Recovering/Resolving]
  - Oromandibular dystonia [Recovering/Resolving]
  - Foot deformity [Not Recovered/Not Resolved]
  - Panic reaction [Recovering/Resolving]
  - Clumsiness [Recovering/Resolving]
  - Language disorder [Recovering/Resolving]
  - Gait disturbance [Recovering/Resolving]
  - Foetal exposure during pregnancy [Unknown]
  - Depression [Not Recovered/Not Resolved]
  - Enuresis [Recovered/Resolved]
  - Autism spectrum disorder [Recovering/Resolving]
